FAERS Safety Report 7208508-0 (Version None)
Quarter: 2010Q4

REPORT INFORMATION
  Report Type: 
  Country: None (occurrence: None)
  Receive Date: 20101230
  Receipt Date: 20101230
  Transmission Date: 20110411
  Serious: Yes (Life-Threatening, Disabling)
  Sender: FDA-Public Use
  Company Number: None

PATIENT
  Sex: Female
  Weight: 68.0396 kg

DRUGS (3)
  1. NALTREXONE HYDROCHLORIDE [Suspect]
     Indication: CHRONIC FATIGUE SYNDROME
     Dosage: 3MG NIGHTLY PO
     Route: 048
     Dates: start: 20101028, end: 20101227
  2. LANTUS [Suspect]
  3. HUMALOG [Suspect]

REACTIONS (1)
  - HYPOGLYCAEMIA [None]
